FAERS Safety Report 11635379 (Version 1)
Quarter: 2015Q4

REPORT INFORMATION
  Report Type: Spontaneous
  Country: NL (occurrence: NL)
  Receive Date: 20151016
  Receipt Date: 20151016
  Transmission Date: 20160304
  Serious: Yes (Other)
  Sender: FDA-Public Use
  Company Number: NL-CIPLA LTD.-2015NL07908

PATIENT

DRUGS (6)
  1. GEMCITABINE [Suspect]
     Active Substance: GEMCITABINE\GEMCITABINE HYDROCHLORIDE
     Indication: METASTASIS
  2. VALPROIC ACID. [Suspect]
     Active Substance: VALPROIC ACID
     Indication: NASOPHARYNGEAL CANCER
     Dosage: 12.5 MG/KG, DAILY, DAY 1 TILL DAY 14
     Route: 048
  3. VALPROIC ACID. [Suspect]
     Active Substance: VALPROIC ACID
     Indication: METASTASIS
  4. GANCICLOVIR. [Suspect]
     Active Substance: GANCICLOVIR
     Indication: NASOPHARYNGEAL CANCER
     Dosage: 450 MG, TID FROM DAY 8 TILL 21
     Route: 048
  5. GEMCITABINE [Suspect]
     Active Substance: GEMCITABINE\GEMCITABINE HYDROCHLORIDE
     Indication: NASOPHARYNGEAL CANCER
     Dosage: 1250 MG/KG2 AT DAY 1 AND 8
     Route: 042
  6. GANCICLOVIR. [Suspect]
     Active Substance: GANCICLOVIR
     Indication: METASTASIS

REACTIONS (2)
  - Disease progression [Unknown]
  - Neutropenia [Unknown]
